FAERS Safety Report 9299029 (Version 1)
Quarter: 2013Q2

REPORT INFORMATION
  Report Type: Spontaneous
  Country: US (occurrence: US)
  Receive Date: 20130520
  Receipt Date: 20130520
  Transmission Date: 20140414
  Serious: Yes (Other)
  Sender: FDA-Public Use
  Company Number: US-BRISTOL-MYERS SQUIBB COMPANY-18884619

PATIENT
  Sex: Female

DRUGS (2)
  1. KENALOG INJ [Suspect]
     Indication: HYPERSENSITIVITY
  2. REMICADE [Suspect]
     Dosage: FORMULATION-REMICADE LYOPHILIZED POWDER
     Route: 042

REACTIONS (2)
  - Hypersensitivity [Unknown]
  - Immune system disorder [Not Recovered/Not Resolved]
